FAERS Safety Report 16285695 (Version 1)
Quarter: 2019Q2

REPORT INFORMATION
  Report Type: Spontaneous
  Country: US (occurrence: US)
  Receive Date: 20190506
  Receipt Date: 20190506
  Transmission Date: 20190711
  Serious: No
  Sender: FDA-Public Use
  Company Number: None

PATIENT
  Age: 65 Year
  Sex: Female

DRUGS (13)
  1. SERTRALINE [Concomitant]
     Active Substance: SERTRALINE HYDROCHLORIDE
     Dates: start: 20190504
  2. B12 / FISH OIL [Concomitant]
     Dates: start: 20190504
  3. APIPRAZOLE [Concomitant]
     Dates: start: 20190504
  4. CENTAMIN LIQ [Concomitant]
     Dates: start: 20190504
  5. LEVOTHYROXIN [Concomitant]
     Active Substance: LEVOTHYROXINE
     Dates: start: 20190504
  6. HISTAFELX [Concomitant]
     Dates: start: 20190504
  7. ALEVE [Concomitant]
     Active Substance: NAPROXEN SODIUM
     Dates: start: 20190504
  8. FLUDROCORT [Concomitant]
     Dates: start: 20190504
  9. NORTHERA [Suspect]
     Active Substance: DROXIDOPA
     Indication: PARKINSON^S DISEASE
     Dosage: ?          OTHER FREQUENCY:1CPOQAM,;?
     Route: 048
     Dates: start: 20190219
  10. RYTARY [Concomitant]
     Active Substance: CARBIDOPA\LEVODOPA
     Dates: start: 20190504
  11. CLONAZEPAM. [Concomitant]
     Active Substance: CLONAZEPAM
     Dates: start: 20190504
  12. CENTRUM [Concomitant]
     Active Substance: VITAMINS
     Dates: start: 20190504
  13. MELATONIN [Concomitant]
     Active Substance: MELATONIN
     Dates: start: 20190504

REACTIONS (3)
  - Hypoaesthesia [None]
  - Tremor [None]
  - Hallucination [None]

NARRATIVE: CASE EVENT DATE: 20190504
